FAERS Safety Report 6863678-9 (Version None)
Quarter: 2010Q3

REPORT INFORMATION
  Report Type: 
  Country: None (occurrence: None)
  Receive Date: 20100721
  Receipt Date: 20080307
  Transmission Date: 20110219
  Serious: No
  Sender: FDA-Public Use
  Company Number: US-PFIZER INC-2008022690

PATIENT
  Sex: Female
  Weight: 70.9 kg

DRUGS (7)
  1. CHANTIX [Suspect]
     Indication: SMOKING CESSATION THERAPY
     Route: 048
     Dates: start: 20070301, end: 20070501
  2. OXYCODONE [Concomitant]
  3. OXYCONTIN [Concomitant]
  4. FLEXERIL [Concomitant]
  5. VALIUM [Concomitant]
  6. PROTONIX [Concomitant]
  7. ANALGESICS [Concomitant]
     Indication: PAIN

REACTIONS (2)
  - NAUSEA [None]
  - VOMITING [None]
